FAERS Safety Report 5299578-8 (Version None)
Quarter: 2007Q2

REPORT INFORMATION
  Report Type: 
  Country: None (occurrence: None)
  Receive Date: 20070417
  Receipt Date: 20070404
  Transmission Date: 20071010
  Serious: Yes (Other)
  Sender: FDA-Public Use
  Company Number: PHEH2007US04086

PATIENT
  Age: 49 Year
  Sex: Female

DRUGS (2)
  1. ZELNORM [Suspect]
     Indication: IRRITABLE BOWEL SYNDROME
     Dosage: 1 TABLET, QD
     Route: 048
     Dates: end: 20070301
  2. ZELNORM [Suspect]
     Dosage: 1 TABLET, BID
     Route: 048
     Dates: start: 20070301, end: 20070404

REACTIONS (2)
  - CARDIAC FLUTTER [None]
  - CHEST PAIN [None]
